FAERS Safety Report 25669511 (Version 1)
Quarter: 2025Q3

REPORT INFORMATION
  Report Type: Spontaneous
  Country: US (occurrence: US)
  Receive Date: 20250812
  Receipt Date: 20250812
  Transmission Date: 20251021
  Serious: No
  Sender: ELI LILLY AND COMPANY
  Company Number: US-ELI_LILLY_AND_COMPANY-US202508009204

PATIENT
  Age: 86 Year
  Sex: Female

DRUGS (6)
  1. MOUNJARO [Suspect]
     Active Substance: TIRZEPATIDE
     Indication: Type 1 diabetes mellitus
     Route: 058
     Dates: start: 202501
  2. MOUNJARO [Suspect]
     Active Substance: TIRZEPATIDE
     Indication: Type 1 diabetes mellitus
     Route: 058
     Dates: start: 202501
  3. MOUNJARO [Suspect]
     Active Substance: TIRZEPATIDE
     Indication: Type 1 diabetes mellitus
     Route: 058
     Dates: start: 202501
  4. MOUNJARO [Suspect]
     Active Substance: TIRZEPATIDE
     Indication: Type 1 diabetes mellitus
     Route: 058
     Dates: start: 202501
  5. BASAGLAR [Concomitant]
     Active Substance: INSULIN GLARGINE
     Indication: Product used for unknown indication
  6. HUMALOG [Concomitant]
     Active Substance: INSULIN LISPRO
     Indication: Product used for unknown indication

REACTIONS (2)
  - Incorrect dose administered [Unknown]
  - Off label use [Unknown]

NARRATIVE: CASE EVENT DATE: 20250101
